FAERS Safety Report 9508355 (Version 1)
Quarter: 2013Q3

REPORT INFORMATION
  Report Type: Spontaneous
  Country: US (occurrence: None)
  Receive Date: 20130905
  Receipt Date: 20130905
  Transmission Date: 20140515
  Serious: Yes (Hospitalization)
  Sender: FDA-Public Use
  Company Number: USA/IND/13/0034373

PATIENT
  Age: 49 Year
  Sex: Female

DRUGS (3)
  1. OMEPRAZOLE (OMEPRAZOLE) [Suspect]
  2. ELTROXIN [Suspect]
     Indication: HYPOTHYROIDISM
  3. DERIPHYLLIN (CORDALIN /00343201/) [Suspect]

REACTIONS (4)
  - Tubulointerstitial nephritis [None]
  - Renal failure [None]
  - Dysphagia [None]
  - Dyspepsia [None]
